FAERS Safety Report 18615358 (Version 1)
Quarter: 2020Q4

REPORT INFORMATION
  Report Type: Spontaneous
  Country: US (occurrence: US)
  Receive Date: 20201214
  Receipt Date: 20201214
  Transmission Date: 20210114
  Serious: No
  Sender: FDA-Public Use
  Company Number: US-LUPIN PHARMACEUTICALS INC.-2020-08209

PATIENT
  Age: 53 Year
  Sex: Female

DRUGS (4)
  1. RIVAROXABAN [Concomitant]
     Active Substance: RIVAROXABAN
     Indication: EMBOLISM VENOUS
     Dosage: UNK
     Route: 065
  2. TREPROSTINIL. [Concomitant]
     Active Substance: TREPROSTINIL
     Indication: PULMONARY ARTERIAL HYPERTENSION
     Dosage: 60 NANOGRAM PER KILOGRAM PER MINUTE
     Route: 058
  3. VORICONAZOLE. [Suspect]
     Active Substance: VORICONAZOLE
     Indication: BRONCHOPULMONARY ASPERGILLOSIS
     Dosage: UNK
     Route: 065
  4. TADALAFIL. [Concomitant]
     Active Substance: TADALAFIL
     Indication: PULMONARY ARTERIAL HYPERTENSION
     Dosage: 40 MILLIGRAM, QD
     Route: 065

REACTIONS (1)
  - Dermatitis allergic [Unknown]
